FAERS Safety Report 16095947 (Version 1)
Quarter: 2019Q1

REPORT INFORMATION
  Report Type: Spontaneous
  Country: US (occurrence: US)
  Receive Date: 20190320
  Receipt Date: 20190320
  Transmission Date: 20190418
  Serious: No
  Sender: FDA-Public Use
  Company Number: US-SA-2019SA072485

PATIENT
  Age: 55 Year
  Sex: Female

DRUGS (1)
  1. LOVENOX [Suspect]
     Active Substance: ENOXAPARIN SODIUM
     Dosage: 75 MG, QD
     Route: 065
     Dates: start: 20190222, end: 20190225

REACTIONS (1)
  - No adverse event [Unknown]
